FAERS Safety Report 15464848 (Version 1)
Quarter: 2018Q4

REPORT INFORMATION
  Report Type: Spontaneous
  Country: US (occurrence: US)
  Receive Date: 20181004
  Receipt Date: 20181004
  Transmission Date: 20190204
  Serious: No
  Sender: FDA-Public Use
  Company Number: US-TARO-2018TAR00184

PATIENT
  Sex: Female

DRUGS (3)
  1. LIDOCAINE OINTMENT USP 5% JAR (SPEARMINT) [Suspect]
     Active Substance: LIDOCAINE
     Indication: NECK PAIN
     Dosage: ^A FINGER-FULL,^  2X/DAY
     Route: 061
     Dates: start: 20180301, end: 20180301
  2. LIDOCAINE OINTMENT USP 5% JAR (SPEARMINT) [Suspect]
     Active Substance: LIDOCAINE
     Indication: BACK PAIN
  3. LIDOCAINE OINTMENT USP 5% JAR (SPEARMINT) [Suspect]
     Active Substance: LIDOCAINE
     Indication: MUSCULOSKELETAL PAIN
     Dosage: ^A FINGER-FULL,^ 2X/DAY
     Route: 061
     Dates: start: 20180301, end: 20180301

REACTIONS (7)
  - Nasal congestion [Recovered/Resolved]
  - Chest discomfort [Recovered/Resolved]
  - Eye irritation [Recovered/Resolved]
  - Choking [Recovered/Resolved]
  - Nausea [Recovered/Resolved]
  - Product quality issue [Recovered/Resolved]
  - Retching [Recovered/Resolved]

NARRATIVE: CASE EVENT DATE: 20180301
